FAERS Safety Report 9386117 (Version 1)
Quarter: 2013Q3

REPORT INFORMATION
  Report Type: Spontaneous
  Country: US (occurrence: US)
  Receive Date: 20130707
  Receipt Date: 20130707
  Transmission Date: 20140515
  Serious: No
  Sender: FDA-Public Use
  Company Number: US-ALLERGAN-1303364US

PATIENT
  Age: 51 Year
  Sex: Female

DRUGS (13)
  1. COMBIGAN[R] [Suspect]
     Indication: GLAUCOMA
     Dosage: 2 GTT, BID
     Route: 047
     Dates: start: 2012
  2. LUMIGAN? 0.01% [Suspect]
     Indication: GLAUCOMA
     Dosage: 2 GTT, QHS
     Route: 047
  3. SIMVASTATIN [Concomitant]
     Indication: BLOOD CHOLESTEROL INCREASED
     Dosage: 20 MG, QHS
     Route: 048
  4. LISINOPRIL [Concomitant]
     Indication: HYPERTENSION
     Dosage: 20 MG, QD
     Route: 048
  5. NORVASC                            /00972401/ [Concomitant]
     Indication: HYPERTENSION
     Dosage: 10 MG, QD
     Route: 048
  6. GAS-X                              /00159502/ [Concomitant]
     Indication: GASTROOESOPHAGEAL REFLUX DISEASE
     Dosage: UNK UNK, PRN
     Route: 048
  7. TUMS                               /00108001/ [Concomitant]
     Indication: GASTROOESOPHAGEAL REFLUX DISEASE
     Dosage: UNK UNK, PRN
     Route: 048
  8. IBUPROFEN [Concomitant]
     Indication: SCIATICA
     Dosage: UNK UNK, PRN
     Route: 048
  9. TYLENOL                            /00020001/ [Concomitant]
     Indication: SCIATICA
     Dosage: UNK UNK, PRN
     Route: 048
  10. GENTEAL EYE OINTMENT [Concomitant]
     Indication: DRY EYE
     Dosage: UNK
     Route: 047
  11. GENTEAL TEARS [Concomitant]
     Indication: DRY EYE
     Dosage: UNK, PRN
     Route: 047
  12. REFRESH TEARS [Concomitant]
     Indication: DRY EYE
     Dosage: UNK, PRN
     Route: 047
  13. LUBRICATING EYE DROPS (NOS) [Concomitant]
     Indication: DRY EYE
     Dosage: UNK, PRN
     Route: 047

REACTIONS (4)
  - Dyspnoea [Unknown]
  - Chest discomfort [Unknown]
  - Heart rate increased [Unknown]
  - Blood pressure decreased [Unknown]
